FAERS Safety Report 10266670 (Version 1)
Quarter: 2014Q2

REPORT INFORMATION
  Report Type: Spontaneous
  Country: GB (occurrence: GB)
  Receive Date: 20140629
  Receipt Date: 20140629
  Transmission Date: 20141212
  Serious: Yes (Life-Threatening)
  Sender: FDA-Public Use
  Company Number: GB-PFIZER INC-2014172920

PATIENT
  Age: 64 Year
  Sex: Male
  Weight: 85.5 kg

DRUGS (4)
  1. CISPLATIN [Suspect]
     Indication: ADENOCARCINOMA GASTRIC
     Dosage: 125 MG, LAST DOSE PRIOR TO SAE 16DEC2010
     Route: 042
     Dates: start: 20101028
  2. EPIRUBICIN HCL [Suspect]
     Indication: ADENOCARCINOMA GASTRIC
     Dosage: 110 MG, LAST DOSE PRIOR TO SAE 16DEC2010
     Route: 042
     Dates: start: 20101028
  3. AVASTIN [Suspect]
     Indication: ADENOCARCINOMA GASTRIC
     Dosage: 650 MG, LAST DOSE PRIOR TO SAE 16DEC2010
     Route: 042
     Dates: start: 20101028
  4. XELODA [Suspect]
     Indication: ADENOCARCINOMA GASTRIC
     Dosage: 2500 MG, LAST DOSE PRIOR TO SAE 16DEC2010
     Route: 048
     Dates: start: 20101028

REACTIONS (1)
  - Deep vein thrombosis [Recovered/Resolved]
